FAERS Safety Report 22376931 (Version 3)
Quarter: 2024Q1

REPORT INFORMATION
  Report Type: Spontaneous
  Country: FR (occurrence: FR)
  Receive Date: 20230529
  Receipt Date: 20240221
  Transmission Date: 20240409
  Serious: Yes (Death, Life-Threatening, Other)
  Sender: FDA-Public Use
  Company Number: FR-MYLANLABS-2023M1051270

PATIENT
  Age: 61 Year
  Sex: Female

DRUGS (4)
  1. AZACITIDINE [Suspect]
     Active Substance: AZACITIDINE
     Indication: Acute myeloid leukaemia
     Dosage: 75 MILLIGRAM/SQ. METER (75 MILLIGRAM/SQ. METER, CYCLICAL TREATMENT, 4 WEEKS)
     Route: 058
  2. DURVALUMAB [Suspect]
     Active Substance: DURVALUMAB
     Indication: Acute myeloid leukaemia
     Dosage: 1500 MILLIGRAM (1500 MILLIGRAM,CYCLICAL TREATMENT, 4 WEEKS)
     Route: 042
  3. Immunoglobulin [Concomitant]
     Indication: Guillain-Barre syndrome
     Dosage: UNK
     Route: 042
  4. DURVALUMAB [Concomitant]
     Active Substance: DURVALUMAB
     Indication: Acute myeloid leukaemia
     Dosage: 1500 MILLIGRAM, CYCLICAL ( TREATMENT, 4 WEEKS)
     Route: 042

REACTIONS (7)
  - Haematological malignancy [Fatal]
  - Encephalopathy [Unknown]
  - JC virus infection [Unknown]
  - Progressive multifocal leukoencephalopathy [Unknown]
  - Demyelinating polyneuropathy [Recovering/Resolving]
  - Guillain-Barre syndrome [Recovering/Resolving]
  - Drug ineffective [Unknown]
